FAERS Safety Report 8007879-5 (Version None)
Quarter: 2011Q4

REPORT INFORMATION
  Report Type: 
  Country: None (occurrence: None)
  Receive Date: 20111227
  Receipt Date: 20111220
  Transmission Date: 20120403
  Serious: Yes (Death)
  Sender: FDA-Public Use
  Company Number: JP-SANOFI-AVENTIS-2011SA075809

PATIENT
  Age: 61 Year
  Sex: Male
  Weight: 57.4 kg

DRUGS (8)
  1. TAXOTERE [Suspect]
     Route: 041
     Dates: start: 20080304
  2. SEROTONE [Concomitant]
     Route: 041
     Dates: start: 20080304
  3. LENDORMIN [Concomitant]
     Route: 048
     Dates: start: 20080303
  4. DEXAMETHASONE [Concomitant]
     Route: 041
     Dates: start: 20080304
  5. FAMOTIDINE [Concomitant]
     Route: 048
     Dates: start: 20080303
  6. DORNER [Concomitant]
     Route: 048
     Dates: start: 20080303
  7. METHYCOBAL [Concomitant]
     Route: 048
     Dates: start: 20080303
  8. ADENOSINE [Concomitant]
     Route: 048
     Dates: start: 20080303

REACTIONS (3)
  - OXYGEN SATURATION DECREASED [None]
  - DYSPNOEA [None]
  - INTERSTITIAL LUNG DISEASE [None]
